FAERS Safety Report 9476306 (Version 1)
Quarter: 2013Q3

REPORT INFORMATION
  Report Type: Report from Study
  Country: CA (occurrence: CA)
  Receive Date: 20130826
  Receipt Date: 20130826
  Transmission Date: 20140515
  Serious: Yes (Other)
  Sender: FDA-Public Use
  Company Number: CA-JNJFOC-20130811133

PATIENT
  Age: 39 Year
  Sex: Female
  Weight: 78.7 kg

DRUGS (7)
  1. REMICADE [Suspect]
     Indication: CROHN^S DISEASE
     Route: 042
  2. VITAMIN B12 [Concomitant]
     Route: 065
  3. CODEINE [Concomitant]
     Route: 065
  4. LOMOTIL [Concomitant]
     Route: 065
  5. RISPERDAL [Concomitant]
     Route: 065
  6. COLESTID [Concomitant]
     Route: 065
  7. PRISTIQ [Concomitant]
     Route: 065

REACTIONS (2)
  - Infected cyst [Recovered/Resolved]
  - Cyst [Recovered/Resolved]
